FAERS Safety Report 4586806-7 (Version None)
Quarter: 2005Q1

REPORT INFORMATION
  Report Type: 
  Country: None (occurrence: None)
  Receive Date: 20050218
  Receipt Date: 20050208
  Transmission Date: 20050727
  Serious: Yes (Other)
  Sender: FDA-Public Use
  Company Number: 200511259GDDC

PATIENT
  Sex: Female

DRUGS (1)
  1. CLOMID [Suspect]
     Indication: POLYCYSTIC OVARIES
     Route: 048

REACTIONS (4)
  - ABORTION SPONTANEOUS [None]
  - DRUG EXPOSURE DURING PREGNANCY [None]
  - INTRACRANIAL VENOUS SINUS THROMBOSIS [None]
  - PREGNANCY [None]
